FAERS Safety Report 4930900-5 (Version None)
Quarter: 2006Q1

REPORT INFORMATION
  Report Type: 
  Country: None (occurrence: None)
  Receive Date: 20060227
  Receipt Date: 20060222
  Transmission Date: 20060701
  Serious: Yes (Hospitalization)
  Sender: FDA-Public Use
  Company Number: S97-UK-00796-01

PATIENT
  Age: 33 Year
  Sex: Female

DRUGS (3)
  1. CITALOPRAM [Suspect]
     Indication: DEPRESSION
  2. PROPOFOL [Suspect]
     Indication: GENERAL ANAESTHESIA
  3. TEMAZEPAM [Concomitant]

REACTIONS (4)
  - CHOLECYSTECTOMY [None]
  - HEART RATE DECREASED [None]
  - HYPOTENSION [None]
  - RESUSCITATION [None]
